FAERS Safety Report 23230015 (Version 1)
Quarter: 2023Q4

REPORT INFORMATION
  Report Type: Spontaneous
  Country: US (occurrence: US)
  Receive Date: 20231127
  Receipt Date: 20231127
  Transmission Date: 20240109
  Serious: No
  Sender: FDA-Public Use
  Company Number: US-JNJFOC-20231165786

PATIENT
  Sex: Female

DRUGS (4)
  1. INVEGA SUSTENNA [Interacting]
     Active Substance: PALIPERIDONE PALMITATE
     Indication: Product used for unknown indication
     Route: 030
  2. INVEGA SUSTENNA [Interacting]
     Active Substance: PALIPERIDONE PALMITATE
  3. INVEGA SUSTENNA [Interacting]
     Active Substance: PALIPERIDONE PALMITATE
  4. CARBAMAZEPINE [Interacting]
     Active Substance: CARBAMAZEPINE
     Indication: Product used for unknown indication
     Route: 065

REACTIONS (7)
  - Drug interaction [Unknown]
  - Vision blurred [Recovered/Resolved]
  - Restlessness [Unknown]
  - Akathisia [Unknown]
  - Insomnia [Unknown]
  - Abnormal behaviour [Unknown]
  - Movement disorder [Unknown]
